FAERS Safety Report 10205340 (Version 1)
Quarter: 2014Q2

REPORT INFORMATION
  Report Type: Spontaneous
  Country: US (occurrence: US)
  Receive Date: 20140529
  Receipt Date: 20140529
  Transmission Date: 20141212
  Serious: No
  Sender: FDA-Public Use
  Company Number: US-SA-2014SA040871

PATIENT
  Age: 56 Year
  Sex: Female

DRUGS (4)
  1. SOLOSTAR [Suspect]
     Indication: DEVICE THERAPY
  2. LANTUS SOLOSTAR [Suspect]
     Indication: TYPE 1 DIABETES MELLITUS
     Route: 058
  3. LANTUS SOLOSTAR [Suspect]
     Indication: TYPE 1 DIABETES MELLITUS
     Dosage: DOSE:36 UNIT(S)
     Route: 058
  4. LANTUS SOLOSTAR [Suspect]
     Indication: TYPE 1 DIABETES MELLITUS
     Dosage: DOSE:26 UNIT(S)
     Route: 058

REACTIONS (2)
  - Blood glucose increased [Unknown]
  - Drug administration error [Unknown]
